FAERS Safety Report 6541633-6 (Version None)
Quarter: 2010Q1

REPORT INFORMATION
  Report Type: 
  Country: None (occurrence: None)
  Receive Date: 20100119
  Receipt Date: 20100111
  Transmission Date: 20100710
  Serious: Yes (Other)
  Sender: FDA-Public Use
  Company Number: GB-JNJFOC-20100104063

PATIENT
  Sex: Female

DRUGS (1)
  1. REMICADE [Suspect]
     Indication: CROHN'S DISEASE
     Dosage: GIVEN EVERY 6-8 WEEKS; LAST INJECTION WAS ^4-DEC^.
     Route: 042

REACTIONS (3)
  - DIPLOPIA [None]
  - EYE PAIN [None]
  - VISUAL IMPAIRMENT [None]
